FAERS Safety Report 5933976-1 (Version None)
Quarter: 2008Q4

REPORT INFORMATION
  Report Type: 
  Country: None (occurrence: None)
  Receive Date: 20081028
  Receipt Date: 20081028
  Transmission Date: 20090506
  Serious: Yes (Other)
  Sender: FDA-Public Use
  Company Number: None

PATIENT
  Age: 21 Year
  Sex: Male
  Weight: 79.3795 kg

DRUGS (2)
  1. ABILIFY [Suspect]
     Indication: SCHIZOPHRENIA, PARANOID TYPE
     Dosage: 20MG EVERYDAY PO
     Route: 048
     Dates: start: 20060430, end: 20060905
  2. ZYPREXA [Suspect]
     Indication: SCHIZOPHRENIA, PARANOID TYPE
     Dosage: 15MG EVERYDAY PO
     Route: 048
     Dates: start: 20060430, end: 20060905

REACTIONS (8)
  - COMA [None]
  - DRY THROAT [None]
  - HEADACHE [None]
  - HYPERPHAGIA [None]
  - HYPERSOMNIA [None]
  - MENTAL DISORDER [None]
  - UNRESPONSIVE TO STIMULI [None]
  - WEIGHT INCREASED [None]
